FAERS Safety Report 5805805-8 (Version None)
Quarter: 2008Q3

REPORT INFORMATION
  Report Type: 
  Country: None (occurrence: None)
  Receive Date: 20080708
  Receipt Date: 20080708
  Transmission Date: 20090109
  Serious: No
  Sender: FDA-Public Use
  Company Number: None

PATIENT
  Age: 75 Year

DRUGS (1)
  1. ZOLADEX [Suspect]

REACTIONS (4)
  - BONE PAIN [None]
  - HYPERHIDROSIS [None]
  - HYPERTENSION [None]
  - NERVOUS SYSTEM DISORDER [None]
